FAERS Safety Report 19620064 (Version 1)
Quarter: 2021Q3

REPORT INFORMATION
  Report Type: Spontaneous
  Country: US (occurrence: US)
  Receive Date: 20210727
  Receipt Date: 20210727
  Transmission Date: 20211014
  Serious: Yes (Other)
  Sender: FDA-Public Use
  Company Number: None

PATIENT
  Age: 53 Year
  Sex: Female
  Weight: 90 kg

DRUGS (5)
  1. HALDOL [Concomitant]
     Active Substance: HALOPERIDOL
  2. LAMICTAL [Concomitant]
     Active Substance: LAMOTRIGINE
  3. VALIUM [Concomitant]
     Active Substance: DIAZEPAM
  4. ASPIRIN. [Concomitant]
     Active Substance: ASPIRIN
  5. ABILIFY [Suspect]
     Active Substance: ARIPIPRAZOLE
     Indication: SCHIZOPHRENIA
     Dosage: ?          OTHER FREQUENCY:EVERY THREE WEEKS;?
     Route: 030
     Dates: start: 20210228, end: 20210727

REACTIONS (3)
  - Wound [None]
  - Hypersensitivity [None]
  - Irritability [None]

NARRATIVE: CASE EVENT DATE: 20210228
